FAERS Safety Report 5834846-X (Version None)
Quarter: 2008Q3

REPORT INFORMATION
  Report Type: 
  Country: None (occurrence: None)
  Receive Date: 20080731
  Receipt Date: 20080403
  Transmission Date: 20090109
  Serious: Yes (Other)
  Sender: FDA-Public Use
  Company Number: AP08-015

PATIENT
  Age: 20 Year
  Sex: Female
  Weight: 51.7101 kg

DRUGS (3)
  1. TRAMADOL HCL [Suspect]
     Indication: HEADACHE
     Dosage: 200MG, Q.I.D., ORAL/PAST FOUR YEARS
     Route: 048
  2. DEPOPRAVERA [Concomitant]
  3. DEPAKOTE [Concomitant]

REACTIONS (4)
  - CONVULSION [None]
  - NAUSEA [None]
  - PANIC ATTACK [None]
  - TREMOR [None]
